FAERS Safety Report 7915322-7 (Version None)
Quarter: 2011Q4

REPORT INFORMATION
  Report Type: 
  Country: None (occurrence: None)
  Receive Date: 20111115
  Receipt Date: 20111107
  Transmission Date: 20120403
  Serious: Yes (Other)
  Sender: FDA-Public Use
  Company Number: PHHY2011US66488

PATIENT
  Sex: Female

DRUGS (7)
  1. GILENYA [Suspect]
     Indication: MULTIPLE SCLEROSIS
     Dosage: 0.5 MG, QD
     Route: 048
     Dates: start: 20110128, end: 20110412
  2. PRIMROSE OIL [Concomitant]
     Indication: ROUTINE HEALTH MAINTENANCE
     Dosage: 1000 MG, QD
     Route: 048
  3. FISH OIL [Concomitant]
     Indication: ROUTINE HEALTH MAINTENANCE
     Dosage: 1000 MG, QD
     Route: 048
  4. PAMWLA SEED OIL [Concomitant]
     Indication: ROUTINE HEALTH MAINTENANCE
     Dosage: 1000 MG ONE TO TWO TIMES DAILY
     Route: 048
  5. BISMUTH SUBSALICYLATE [Concomitant]
     Indication: ROUTINE HEALTH MAINTENANCE
     Dosage: 2 DF, QD
     Route: 048
  6. CURCUMEN [Concomitant]
     Indication: ROUTINE HEALTH MAINTENANCE
     Dosage: 500 MG, QD
     Route: 048
  7. MULTI-VITAMINS [Concomitant]
     Indication: ROUTINE HEALTH MAINTENANCE
     Dosage: UNK UKN, UNK
     Route: 048

REACTIONS (3)
  - LYMPHOPENIA [None]
  - HYPERTENSION [None]
  - FATIGUE [None]
